FAERS Safety Report 7448019-0 (Version None)
Quarter: 2011Q2

REPORT INFORMATION
  Report Type: 
  Country: None (occurrence: None)
  Receive Date: 20110429
  Receipt Date: 20100323
  Transmission Date: 20111010
  Serious: No
  Sender: FDA-Public Use
  Company Number: US-ASTRAZENECA-2010SE12972

PATIENT
  Age: 75 Year
  Sex: Female
  Weight: 61.2 kg

DRUGS (3)
  1. NEXIUM [Suspect]
     Route: 048
     Dates: start: 20100310
  2. TOPROL-XL [Suspect]
     Dosage: TWO TIMES A DAY
     Route: 048
  3. NEXIUM [Suspect]
     Indication: GASTROOESOPHAGEAL REFLUX DISEASE
     Route: 048

REACTIONS (8)
  - RHINORRHOEA [None]
  - COUGH [None]
  - DIARRHOEA [None]
  - DRY MOUTH [None]
  - DYSPHONIA [None]
  - HEADACHE [None]
  - PRODUCTIVE COUGH [None]
  - FLATULENCE [None]
